FAERS Safety Report 10075488 (Version 1)
Quarter: 2014Q2

REPORT INFORMATION
  Report Type: Spontaneous
  Country: None (occurrence: None)
  Receive Date: 20140411
  Receipt Date: 20140411
  Transmission Date: 20141212
  Serious: Yes (Hospitalization)
  Sender: FDA-Public Use
  Company Number: None

PATIENT
  Age: 78 Year
  Sex: Male

DRUGS (13)
  1. ZYTIGA [Suspect]
     Route: 048
     Dates: start: 20130731
  2. XGEVA [Concomitant]
  3. FLOMAX [Concomitant]
  4. LOPRESSOR [Concomitant]
  5. MABIC [Concomitant]
  6. LUPRON [Concomitant]
  7. FLONASE [Concomitant]
  8. CASODEX [Concomitant]
  9. AVODART [Concomitant]
  10. LIPITOR [Concomitant]
  11. ACYCLOVIR [Concomitant]
  12. ASPIRIN [Concomitant]
  13. CALCIUM D [Concomitant]

REACTIONS (1)
  - Drug dose omission [None]
